FAERS Safety Report 5228364-X (Version None)
Quarter: 2007Q1

REPORT INFORMATION
  Report Type: 
  Country: None (occurrence: None)
  Receive Date: 20070131
  Receipt Date: 20070131
  Transmission Date: 20070707
  Serious: Yes (Disabling, Other)
  Sender: FDA-Public Use
  Company Number: None

PATIENT
  Age: 50 Year
  Sex: Female
  Weight: 92.5338 kg

DRUGS (2)
  1. REMICADE [Suspect]
     Indication: RHEUMATOID ARTHRITIS
     Dosage: INFUSION ABOUT EVERY 8 WEEKS
     Dates: start: 20051101
  2. REMICADE [Suspect]
     Indication: RHEUMATOID ARTHRITIS
     Dosage: INFUSION ABOUT EVERY 8 WEEKS
     Dates: start: 20060101

REACTIONS (5)
  - ANXIETY [None]
  - DISCOMFORT [None]
  - PAIN [None]
  - RASH [None]
  - SKIN DISORDER [None]
